FAERS Safety Report 10049999 (Version 1)
Quarter: 2014Q2

REPORT INFORMATION
  Report Type: Spontaneous
  Country: GB (occurrence: GB)
  Receive Date: 20140401
  Receipt Date: 20140401
  Transmission Date: 20141212
  Serious: Yes (Congenital Anomaly, Other)
  Sender: FDA-Public Use
  Company Number: GB-009507513-1002GBR00092B1

PATIENT
  Age: 0 Year
  Sex: 0

DRUGS (1)
  1. SINGULAIR [Suspect]
     Indication: ASTHMA
     Dosage: 10 MG, QD
     Route: 064
     Dates: start: 2006, end: 20100222

REACTIONS (5)
  - Deafness [Unknown]
  - Polydactyly [Unknown]
  - Polydactyly [Unknown]
  - Adverse event [Recovered/Resolved]
  - Foetal exposure during pregnancy [Unknown]
